FAERS Safety Report 8804147 (Version 2)
Quarter: 2012Q4

REPORT INFORMATION
  Report Type: 
  Country: DE (occurrence: DE)
  Receive Date: 20120923
  Receipt Date: 20121108
  Transmission Date: 20130627
  Serious: Yes (Hospitalization)
  Sender: FDA-Public Use
  Company Number: DE-BIOGENIDEC-2012BI038356

PATIENT
  Age: 57 Year
  Sex: Male
  Weight: 90 kg

DRUGS (9)
  1. AVONEX [Suspect]
     Indication: MULTIPLE SCLEROSIS
     Route: 030
     Dates: start: 20090409
  2. BLOPRESS [Concomitant]
     Indication: HYPERTENSION
  3. SIMVASTATIN [Concomitant]
     Indication: HYPERCHOLESTEROLAEMIA
  4. METOHEXAL [Concomitant]
     Indication: ARRHYTHMIA
  5. ALLOPURINOL [Concomitant]
     Indication: GOUT
  6. UROXATRAL [Concomitant]
     Indication: BENIGN PROSTATIC HYPERPLASIA
  7. PANTOZOL [Concomitant]
     Indication: PROPHYLAXIS
  8. AMLODIPIN [Concomitant]
     Indication: PRODUCT USED FOR UNKNOWN INDICATION
  9. IBUPROFEN [Concomitant]
     Indication: PRODUCT USED FOR UNKNOWN INDICATION

REACTIONS (5)
  - Syncope [Recovered/Resolved]
  - Fall [Recovered/Resolved]
  - Respiratory distress [Recovered/Resolved]
  - Epistaxis [Recovered/Resolved]
  - Headache [Recovered/Resolved]
